FAERS Safety Report 13546216 (Version 3)
Quarter: 2017Q3

REPORT INFORMATION
  Report Type: Spontaneous
  Country: US (occurrence: US)
  Receive Date: 20170515
  Receipt Date: 20170717
  Transmission Date: 20171127
  Serious: No
  Sender: FDA-Public Use
  Company Number: US-SUNOVION-2017SUN001831

PATIENT

DRUGS (1)
  1. LATUDA [Suspect]
     Active Substance: LURASIDONE HYDROCHLORIDE
     Indication: BIPOLAR DISORDER
     Dosage: UNK
     Route: 048

REACTIONS (13)
  - Depressed mood [Unknown]
  - Crying [Unknown]
  - Nightmare [Unknown]
  - Feeling of despair [Unknown]
  - Somnolence [Unknown]
  - Irritability [Unknown]
  - Bipolar I disorder [Unknown]
  - Restlessness [Unknown]
  - Mania [Unknown]
  - Feeling abnormal [Unknown]
  - Pain [Unknown]
  - Anxiety [Unknown]
  - Mental impairment [Unknown]
